FAERS Safety Report 20086144 (Version 2)
Quarter: 2021Q4

REPORT INFORMATION
  Report Type: Report from Study
  Country: TR (occurrence: TR)
  Receive Date: 20211118
  Receipt Date: 20211202
  Transmission Date: 20220303
  Serious: Yes (Hospitalization, Other)
  Sender: FDA-Public Use
  Company Number: TR-NOVOPROD-864758

PATIENT
  Age: 61 Year
  Sex: Male
  Weight: 107 kg

DRUGS (1)
  1. SEMAGLUTIDE [Suspect]
     Active Substance: SEMAGLUTIDE
     Indication: Obesity
     Dosage: 2.4 MG, QW
     Route: 058
     Dates: start: 20190404, end: 20211108

REACTIONS (1)
  - Bile duct stone [Recovered/Resolved]

NARRATIVE: CASE EVENT DATE: 20211106
